FAERS Safety Report 10178436 (Version 2)
Quarter: 2014Q2

REPORT INFORMATION
  Report Type: Spontaneous
  Country: DE (occurrence: DE)
  Receive Date: 20140519
  Receipt Date: 20140609
  Transmission Date: 20141212
  Serious: Yes (Life-Threatening, Hospitalization)
  Sender: FDA-Public Use
  Company Number: DE-JNJFOC-20140508503

PATIENT
  Age: 81 Year
  Sex: Male
  Weight: 72 kg

DRUGS (12)
  1. XARELTO [Suspect]
     Indication: ATRIAL FIBRILLATION
     Route: 048
     Dates: end: 20140523
  2. XARELTO [Suspect]
     Indication: CEREBROVASCULAR ACCIDENT PROPHYLAXIS
     Route: 048
     Dates: end: 20140523
  3. BISOPROLOL [Concomitant]
     Route: 065
  4. NOVODIGAL [Concomitant]
     Route: 065
  5. RAMIPRIL [Concomitant]
     Route: 065
  6. HEPARIN [Concomitant]
     Route: 065
  7. VIT K ANTAGONISTS [Concomitant]
     Route: 065
  8. DABIGATRAN [Concomitant]
     Route: 065
  9. APIXABAN [Concomitant]
     Route: 065
  10. FONDAPARINUX [Concomitant]
     Route: 065
  11. ACETYLSALICYLIC ACID [Concomitant]
     Route: 065
  12. PANTOPRAZOLE [Concomitant]
     Route: 065

REACTIONS (2)
  - Cerebral artery occlusion [Recovering/Resolving]
  - Fall [Unknown]
